FAERS Safety Report 4679231-1 (Version None)
Quarter: 2005Q2

REPORT INFORMATION
  Report Type: 
  Country: None (occurrence: None)
  Receive Date: 20050311
  Receipt Date: 20050311
  Transmission Date: 20051028
  Serious: Yes (Other)
  Sender: FDA-Public Use
  Company Number: None

PATIENT
  Sex: Female
  Weight: 60.3284 kg

DRUGS (2)
  1. VICODIN [Suspect]
     Indication: POST PROCEDURAL PAIN
     Dosage: ONE TAB PO Q 6 HOURS PRN
     Route: 048
  2. HALCION [Suspect]
     Indication: INSOMNIA
     Dosage: ONE TAB PO QHS
     Route: 048

REACTIONS (1)
  - DRUG INEFFECTIVE [None]
